FAERS Safety Report 10404894 (Version 2)
Quarter: 2014Q3

REPORT INFORMATION
  Report Type: Report from Study
  Country: US (occurrence: US)
  Receive Date: 20140825
  Receipt Date: 20140915
  Transmission Date: 20150326
  Serious: Yes (Hospitalization)
  Sender: FDA-Public Use
  Company Number: US-BIOGENIDEC-2014BI084310

PATIENT
  Age: 52 Year

DRUGS (1)
  1. TYSABRI [Suspect]
     Active Substance: NATALIZUMAB
     Indication: MULTIPLE SCLEROSIS
     Route: 042
     Dates: start: 20131231

REACTIONS (2)
  - Acoustic neuroma [Recovered/Resolved]
  - Cranial nerve neoplasm benign [Unknown]

NARRATIVE: CASE EVENT DATE: 201407
